FAERS Safety Report 26206712 (Version 1)
Quarter: 2025Q4

REPORT INFORMATION
  Report Type: Spontaneous
  Country: US (occurrence: US)
  Receive Date: 20251229
  Receipt Date: 20251229
  Transmission Date: 20260118
  Serious: Yes (Hospitalization)
  Sender: BRISTOL-MYERS SQUIBB COMPANY
  Company Number: US-BRISTOL-MYERS SQUIBB COMPANY-2025-173221

PATIENT
  Age: 83 Year
  Sex: Male
  Weight: 74.84 kg

DRUGS (13)
  1. POMALYST [Suspect]
     Active Substance: POMALIDOMIDE
     Indication: Kaposi^s sarcoma
     Route: 048
     Dates: start: 20250828
  2. POMALYST [Suspect]
     Active Substance: POMALIDOMIDE
     Dosage: TAKE ONE CAPSULE (4 MG) BY MOUTH ONCE DAILY FOR 21 DAYS ON, 7 DAYS OFF OF EACH 28 DAYS CYCLE. (TAKE WITH 1 MG FOR TOTAL DAILY DOSE OF 5MG) AND TAKE 1 BY MOUTH ONCE DAILY X 21 DAYS THEN OFF 7(COMBINED WITH 1MG DOSE TO MAKE A TOTAL OF 5MG)
     Route: 048
  3. POMALYST [Suspect]
     Active Substance: POMALIDOMIDE
     Dosage: TAKE 1 BY MOUTH ONCE DAILY X 21 THEN OFF 7
     Route: 048
  4. POMALYST [Suspect]
     Active Substance: POMALIDOMIDE
     Dosage: TAKE ONE CAPSULE (1MG) BY MOUTH ONCE DAILY FOR 21 DAYS ON, 7 DAYS OFF OF EACH 28 DAYS CYCLE. (TAKE WITH 4MG FOR TOTAL DAILY DOSE OF 5MG) AND TAKE 1 BY MOUTH ONCE DAILY X 21 DAYS THEN OFF 7 (COMBINED WITH 4 MG DOSE TO MAKE A TOTAL OF 5MG)
     Route: 048
  5. ELIQUIS [Concomitant]
     Active Substance: APIXABAN
     Indication: Product used for unknown indication
     Route: 048
  6. GABAPENTIN [Concomitant]
     Active Substance: GABAPENTIN
     Indication: Product used for unknown indication
     Dates: start: 20250826, end: 20250828
  7. LASIX [Concomitant]
     Active Substance: FUROSEMIDE
     Indication: Product used for unknown indication
  8. LEVOTHYROXINE SODIUM [Concomitant]
     Active Substance: LEVOTHYROXINE SODIUM
     Indication: Product used for unknown indication
  9. LISINOPRIL [Concomitant]
     Active Substance: LISINOPRIL
     Indication: Product used for unknown indication
     Route: 048
     Dates: start: 20250826, end: 20250828
  10. METOPROLOL [Concomitant]
     Active Substance: METOPROLOL
     Indication: Product used for unknown indication
  11. OMEPRAZOLE [Concomitant]
     Active Substance: OMEPRAZOLE
     Indication: Product used for unknown indication
  12. ROSUVASTATIN [Concomitant]
     Active Substance: ROSUVASTATIN
     Indication: Product used for unknown indication
     Route: 048
  13. TAMSULOSIN HCL ZYDUS [Concomitant]
     Indication: Product used for unknown indication

REACTIONS (1)
  - Hospitalisation [Unknown]
